FAERS Safety Report 12252936 (Version 1)
Quarter: 2016Q2

REPORT INFORMATION
  Report Type: Spontaneous
  Country: US (occurrence: US)
  Receive Date: 20160411
  Receipt Date: 20160411
  Transmission Date: 20160815
  Serious: Yes (Hospitalization)
  Sender: FDA-Public Use
  Company Number: US-SA-2016SA067145

PATIENT
  Age: 39 Year
  Sex: Female

DRUGS (6)
  1. LEMTRADA [Suspect]
     Active Substance: ALEMTUZUMAB
     Route: 065
     Dates: start: 20160111, end: 20160115
  2. ACYCLOVIR. [Concomitant]
     Active Substance: ACYCLOVIR
  3. GABAPENTIN. [Concomitant]
     Active Substance: GABAPENTIN
     Dosage: TID PRN
  4. AZITHROMYCIN ANHYDROUS. [Concomitant]
     Active Substance: AZITHROMYCIN ANHYDROUS
     Route: 048
  5. VITAMIN D [Concomitant]
     Active Substance: CHOLECALCIFEROL
  6. CEFTRIAXONE. [Concomitant]
     Active Substance: CEFTRIAXONE

REACTIONS (4)
  - Pyrexia [Unknown]
  - Dyspnoea [Unknown]
  - Cough [Unknown]
  - Night sweats [Unknown]
